FAERS Safety Report 8171703-0 (Version None)
Quarter: 2012Q1

REPORT INFORMATION
  Report Type: 
  Country: None (occurrence: None)
  Receive Date: 20120113
  Receipt Date: 20111102
  Transmission Date: 20120608
  Serious: No
  Sender: FDA-Public Use
  Company Number: PHHY2011US65451

PATIENT
  Age: 44 Year
  Sex: Male

DRUGS (1)
  1. ILARIS [Suspect]
     Indication: MUCKLE-WELLS SYNDROME
     Dosage: 150 MG, EVERY 8 WEEKS, SUBCUTANEOUS
     Route: 058
     Dates: start: 20101101

REACTIONS (5)
  - FEELING HOT [None]
  - ECZEMA [None]
  - LOCAL SWELLING [None]
  - VISUAL ACUITY REDUCED [None]
  - PRURITUS [None]
